FAERS Safety Report 21405143 (Version 1)
Quarter: 2022Q4

REPORT INFORMATION
  Report Type: Spontaneous
  Country: DE (occurrence: DE)
  Receive Date: 20221004
  Receipt Date: 20221004
  Transmission Date: 20230113
  Serious: Yes (Other)
  Sender: FDA-Public Use
  Company Number: DE-ALKEM LABORATORIES LIMITED-DE-ALKEM-2022-10446

PATIENT
  Sex: Female

DRUGS (2)
  1. FINGOLIMOD [Suspect]
     Active Substance: FINGOLIMOD
     Indication: Multiple sclerosis
     Dosage: 0.5 MILLIGRAM, QD, CAPSULE, HARD
     Route: 048
     Dates: start: 20180913
  2. FINGOLIMOD [Suspect]
     Active Substance: FINGOLIMOD
     Dosage: 0.5 MILLIGRAM, QD, CAPSULE, HARD (GILENYA)
     Route: 048
     Dates: start: 20180913

REACTIONS (8)
  - Haemorrhage [Recovered/Resolved]
  - Hypertension [Not Recovered/Not Resolved]
  - Migraine [Recovered/Resolved]
  - Meralgia paraesthetica [Not Recovered/Not Resolved]
  - Depression [Recovered/Resolved]
  - Weight decreased [Not Recovered/Not Resolved]
  - Osteopenia [Not Recovered/Not Resolved]
  - Osteoporosis [Not Recovered/Not Resolved]

NARRATIVE: CASE EVENT DATE: 20180924
